FAERS Safety Report 6172360-5 (Version None)
Quarter: 2009Q2

REPORT INFORMATION
  Report Type: 
  Country: None (occurrence: None)
  Receive Date: 20090429
  Receipt Date: 20090420
  Transmission Date: 20091009
  Serious: Yes (Other)
  Sender: FDA-Public Use
  Company Number: PHHY2009FR15374

PATIENT
  Age: 57 Year
  Sex: Male

DRUGS (1)
  1. GLEEVEC [Suspect]
     Indication: GASTROINTESTINAL STROMAL TUMOUR
     Dosage: 400 MG, BID

REACTIONS (4)
  - MALIGNANT MELANOMA [None]
  - MELANOMA RECURRENT [None]
  - METASTATIC MALIGNANT MELANOMA [None]
  - SURGERY [None]
